FAERS Safety Report 23436459 (Version 2)
Quarter: 2024Q1

REPORT INFORMATION
  Report Type: Report from Study
  Country: US (occurrence: US)
  Receive Date: 20240124
  Receipt Date: 20240311
  Transmission Date: 20240409
  Serious: Yes (Hospitalization, Other)
  Sender: FDA-Public Use
  Company Number: US-002147023-NVSC2024US015438

PATIENT
  Age: 76 Year
  Sex: Male

DRUGS (1)
  1. ENTRESTO [Suspect]
     Active Substance: SACUBITRIL\VALSARTAN
     Indication: Product used for unknown indication
     Dosage: 1 DOSAGE FORM, BID (97/103 MG, TWICE A DAY)
     Route: 065

REACTIONS (9)
  - Pneumonia [Unknown]
  - Loss of consciousness [Unknown]
  - Hypotension [Recovering/Resolving]
  - Arthralgia [Unknown]
  - Pain in extremity [Unknown]
  - Rib fracture [Unknown]
  - Nasopharyngitis [Unknown]
  - Cough [Unknown]
  - Nasal congestion [Unknown]

NARRATIVE: CASE EVENT DATE: 20231001
